FAERS Safety Report 16189452 (Version 6)
Quarter: 2022Q1

REPORT INFORMATION
  Report Type: Report from Study
  Country: JP (occurrence: JP)
  Receive Date: 20190412
  Receipt Date: 20220203
  Transmission Date: 20220424
  Serious: Yes (Hospitalization)
  Sender: FDA-Public Use
  Company Number: JP-PFIZER INC-2019159311

PATIENT
  Age: 44 Year
  Sex: Female
  Weight: 57.4 kg

DRUGS (8)
  1. SIROLIMUS [Suspect]
     Active Substance: SIROLIMUS
     Indication: Lymphangioleiomyomatosis
     Dosage: 2 MG, 1X/DAY
     Route: 048
     Dates: start: 20180329, end: 20180403
  2. SIROLIMUS [Suspect]
     Active Substance: SIROLIMUS
     Dosage: 2 MG, 1X/DAY
     Route: 048
     Dates: start: 20180511, end: 20180518
  3. SIROLIMUS [Suspect]
     Active Substance: SIROLIMUS
     Dosage: 2 MG, 1X/DAY
     Route: 048
     Dates: start: 20181005, end: 20190108
  4. SIROLIMUS [Suspect]
     Active Substance: SIROLIMUS
     Dosage: 2 MG, 1X/DAY
     Route: 048
     Dates: start: 20190826
  5. FEXOFENADINE HYDROCHLORIDE [Concomitant]
     Active Substance: FEXOFENADINE HYDROCHLORIDE
     Indication: Lymphangioleiomyomatosis
     Dosage: UNK UNK, DAILY
     Route: 048
  6. SODIUM GUALENATE MONOHYDRATE [Concomitant]
     Active Substance: SODIUM GUALENATE MONOHYDRATE
     Indication: Prophylaxis
     Dosage: UNK, 6 HR
     Route: 065
     Dates: start: 20180328
  7. GLYCOSAMINOGLYCANS [Concomitant]
     Active Substance: GLYCOSAMINOGLYCANS
     Indication: Prophylaxis
     Dosage: UNK
     Route: 065
     Dates: start: 20190412
  8. SIROLIMUS [Concomitant]
     Active Substance: SIROLIMUS
     Indication: Tuberous sclerosis complex
     Dosage: UNK, 12 HR
     Route: 003
     Dates: start: 20181210

REACTIONS (9)
  - Pneumothorax [Recovered/Resolved]
  - Pneumothorax [Recovered/Resolved]
  - Ovarian cyst [Recovered/Resolved]
  - Pneumothorax [Recovered/Resolved]
  - Pneumothorax [Recovered/Resolved]
  - Infectious pleural effusion [Recovered/Resolved]
  - Diarrhoea [Recovered/Resolved]
  - Herpes simplex [Recovered/Resolved]
  - Eczema [Recovering/Resolving]

NARRATIVE: CASE EVENT DATE: 20180402
